FAERS Safety Report 7924495-1 (Version None)
Quarter: 2011Q4

REPORT INFORMATION
  Report Type: 
  Country: None (occurrence: None)
  Receive Date: 20111117
  Receipt Date: 20110322
  Transmission Date: 20120403
  Serious: No
  Sender: FDA-Public Use
  Company Number: US-AMGEN-USASP2011015464

PATIENT
  Age: 46 Year
  Sex: Female

DRUGS (3)
  1. ENBREL [Suspect]
     Indication: BEHCET'S SYNDROME
     Dates: start: 20100502
  2. ENBREL [Suspect]
     Indication: COELIAC DISEASE
  3. ENBREL [Suspect]
     Indication: UVEITIS

REACTIONS (7)
  - EAR PAIN [None]
  - FATIGUE [None]
  - INJECTION SITE PAIN [None]
  - HEADACHE [None]
  - SINUSITIS [None]
  - IRRITABILITY [None]
  - TOOTH INFECTION [None]
